FAERS Safety Report 7086835-8 (Version None)
Quarter: 2010Q4

REPORT INFORMATION
  Report Type: 
  Country: None (occurrence: None)
  Receive Date: 20101105
  Receipt Date: 20101025
  Transmission Date: 20110411
  Serious: Yes (Hospitalization)
  Sender: FDA-Public Use
  Company Number: GB-AMGEN-GBRSP2010001138

PATIENT

DRUGS (6)
  1. NPLATE [Suspect]
     Indication: IDIOPATHIC THROMBOCYTOPENIC PURPURA
     Dosage: 500 A?G, QWK
     Route: 058
     Dates: start: 20100101
  2. PREDNISOLONE [Concomitant]
     Dosage: 10 MG, QD
     Route: 048
  3. MYCOPHENOLATE MOFETIL [Concomitant]
     Dosage: 750 MG, BID
     Route: 048
  4. OMEPRAZOLE [Concomitant]
     Dosage: 20 MG, UNK
     Route: 048
  5. PENICILLIN V                       /00001801/ [Concomitant]
     Dosage: 500 MG, QD
     Route: 048
  6. ALENDRONATE SODIUM [Concomitant]
     Dosage: 70 MG, QWK
     Route: 048

REACTIONS (1)
  - ACUTE MYOCARDIAL INFARCTION [None]
